FAERS Safety Report 7875049-7 (Version None)
Quarter: 2011Q4

REPORT INFORMATION
  Report Type: 
  Country: None (occurrence: None)
  Receive Date: 20111031
  Receipt Date: 20111021
  Transmission Date: 20120403
  Serious: Yes (Hospitalization)
  Sender: FDA-Public Use
  Company Number: FR-BRISTOL-MYERS SQUIBB COMPANY-16050965

PATIENT
  Age: 59 Year
  Sex: Female

DRUGS (10)
  1. CREON [Concomitant]
     Dosage: 3-6 TIMES/D
  2. ERBITUX [Suspect]
     Indication: NEOPLASM MALIGNANT
     Dosage: NO OF INFUSION-1.LAST DOSE ON 23AUG11:5DAYS.
     Route: 042
     Dates: start: 20110818, end: 20110823
  3. CLONAZEPAM [Concomitant]
  4. IMOVANE [Concomitant]
     Dosage: TABLET
  5. STABLON [Concomitant]
     Dosage: TABLET
  6. ACETAMINOPHEN AND CODEINE PHOSPHATE [Concomitant]
  7. MAGNE-B6 [Concomitant]
  8. CLASTOBAN [Concomitant]
     Dosage: 1DF:800MG TABS
  9. TORISEL [Suspect]
     Indication: NEOPLASM MALIGNANT
     Dosage: NO OF INFUSION-1.LAST DOSE ON 23AUG11:5DAYS.
     Route: 042
     Dates: start: 20110818, end: 20110823
  10. NEXIUM [Concomitant]

REACTIONS (1)
  - VENA CAVA THROMBOSIS [None]
